FAERS Safety Report 7451088-5 (Version None)
Quarter: 2011Q2

REPORT INFORMATION
  Report Type: 
  Country: None (occurrence: None)
  Receive Date: 20110429
  Receipt Date: 20110429
  Transmission Date: 20111010
  Serious: Yes (Hospitalization)
  Sender: FDA-Public Use
  Company Number: None

PATIENT
  Age: 71 Year
  Sex: Male
  Weight: 122.7 kg

DRUGS (15)
  1. LOSARTAN [Suspect]
     Indication: HYPERTENSION
     Dosage: 100MG DAILY PO CHRONIC
     Route: 048
  2. VIAGRA [Concomitant]
  3. TESTOSTERONE [Concomitant]
  4. LISINOPRIL [Suspect]
     Indication: HYPERTENSION
     Dosage: 40MG DAILY PO CHRONIC
     Route: 048
  5. SPIRONOLACTONE [Suspect]
     Indication: HYPERTENSION
     Dosage: 25MG DAILY PO CHRONIC
     Route: 048
  6. CARDIZEM [Concomitant]
  7. ATENOLOL [Concomitant]
  8. LASIX [Concomitant]
  9. VIT D [Concomitant]
  10. BACTRIM [Suspect]
     Indication: CELLULITIS
     Dosage: DS X 2 TABS BID PO RECENT
     Route: 048
  11. FOSAMAX [Concomitant]
  12. ASPIRIN [Concomitant]
  13. FLONASE [Concomitant]
  14. SYNTHROID [Concomitant]
  15. ADVICOR [Concomitant]

REACTIONS (4)
  - ASTHENIA [None]
  - HYPERKALAEMIA [None]
  - FALL [None]
  - RENAL FAILURE ACUTE [None]
